FAERS Safety Report 4696018-4 (Version None)
Quarter: 2005Q2

REPORT INFORMATION
  Report Type: 
  Country: None (occurrence: None)
  Receive Date: 20050621
  Receipt Date: 20050519
  Transmission Date: 20051028
  Serious: Yes (Hospitalization)
  Sender: FDA-Public Use
  Company Number: FR-GLAXOSMITHKLINE-B0381904A

PATIENT
  Age: 69 Year
  Sex: Male
  Weight: 50 kg

DRUGS (3)
  1. AUGMENTIN '125' [Suspect]
     Indication: ILL-DEFINED DISORDER
     Dosage: 3G PER DAY
     Route: 042
     Dates: start: 20050311, end: 20050317
  2. FLAGYL [Suspect]
     Indication: ILL-DEFINED DISORDER
     Dosage: 1.5G PER DAY
     Route: 042
     Dates: start: 20050318, end: 20050321
  3. ROCEPHIN [Suspect]
     Indication: ILL-DEFINED DISORDER
     Dosage: 1.5G PER DAY
     Route: 042
     Dates: start: 20050318, end: 20050321

REACTIONS (2)
  - COAGULATION FACTOR DECREASED [None]
  - PROTHROMBIN TIME RATIO DECREASED [None]
